FAERS Safety Report 17026212 (Version 1)
Quarter: 2019Q4

REPORT INFORMATION
  Report Type: Spontaneous
  Country: US (occurrence: US)
  Receive Date: 20191112
  Receipt Date: 20191112
  Transmission Date: 20200122
  Serious: No
  Sender: FDA-Public Use
  Company Number: None

PATIENT
  Age: 67 Year
  Sex: Female
  Weight: 107.1 kg

DRUGS (10)
  1. LEVOTHYROXINE 1.25 MCG [Concomitant]
  2. VIT-D SUPPLEMENT [Concomitant]
  3. PROBIOTICS [Concomitant]
     Active Substance: PROBIOTICS NOS
  4. MACRODANTIN [Concomitant]
     Active Substance: NITROFURANTOIN
  5. XIIDRA [Concomitant]
     Active Substance: LIFITEGRAST
     Dosage: ?          QUANTITY:1 DROP(S);?
     Route: 047
     Dates: start: 20190813
  6. XARELTO [Concomitant]
     Active Substance: RIVAROXABAN
  7. CRANBERRY CAPSULES [Concomitant]
  8. ESTRODIOL [Concomitant]
     Active Substance: ESTRADIOL
  9. VITAMIN B-50 [Concomitant]
  10. LEXAPRO [Concomitant]
     Active Substance: ESCITALOPRAM OXALATE

REACTIONS (5)
  - Ocular discomfort [None]
  - Eye irritation [None]
  - Eye discharge [None]
  - Vision blurred [None]
  - Dysgeusia [None]

NARRATIVE: CASE EVENT DATE: 20191112
